FAERS Safety Report 5977156-2 (Version None)
Quarter: 2008Q4

REPORT INFORMATION
  Report Type: 
  Country: None (occurrence: None)
  Receive Date: 20081203
  Receipt Date: 20081201
  Transmission Date: 20090506
  Serious: Yes (Death, Other)
  Sender: FDA-Public Use
  Company Number: JP-BRISTOL-MYERS SQUIBB COMPANY-14425201

PATIENT
  Age: 2 Decade
  Sex: Female

DRUGS (3)
  1. TRAZODONE HCL [Suspect]
  2. PAROXETINE HCL [Suspect]
  3. FLUNITRAZEPAM [Suspect]

REACTIONS (2)
  - DEPRESSED LEVEL OF CONSCIOUSNESS [None]
  - OVERDOSE [None]
